FAERS Safety Report 4628274-2 (Version None)
Quarter: 2005Q2

REPORT INFORMATION
  Report Type: 
  Country: None (occurrence: None)
  Receive Date: 20050401
  Receipt Date: 20050321
  Transmission Date: 20051028
  Serious: Yes (Life-Threatening)
  Sender: FDA-Public Use
  Company Number: 2005000919

PATIENT
  Age: 56 Year
  Sex: Male

DRUGS (4)
  1. BEXTRA [Suspect]
     Indication: OSTEOARTHRITIS
     Dosage: 20 MG, (20 MG,  1 IN 1 D), ORAL
     Route: 048
     Dates: start: 20020101, end: 20041101
  2. RAMIPRIL [Concomitant]
  3. ROSUVASTATIN (ROSUVASTATIN) [Concomitant]
  4. ASPIRIN [Concomitant]

REACTIONS (3)
  - CORONARY ARTERY DISEASE [None]
  - CORONARY ARTERY OCCLUSION [None]
  - MYOCARDIAL INFARCTION [None]
